FAERS Safety Report 7645864-3 (Version None)
Quarter: 2011Q3

REPORT INFORMATION
  Report Type: 
  Country: None (occurrence: None)
  Receive Date: 20110729
  Receipt Date: 20110719
  Transmission Date: 20111222
  Serious: Yes (Disabling)
  Sender: FDA-Public Use
  Company Number: JP-ALLERGAN-1110084US

PATIENT
  Age: 59 Year
  Sex: Male

DRUGS (3)
  1. LUMIGAN [Suspect]
     Indication: ANGLE CLOSURE GLAUCOMA
     Dosage: 1 GTT, QID
     Route: 047
     Dates: start: 20110708, end: 20110715
  2. TEARBALANCE [Concomitant]
     Dosage: UNK
     Dates: start: 20110511
  3. ARTIFICIAL TEARS                   /00445101/ [Concomitant]
     Dosage: UNK
     Dates: start: 20110707, end: 20110715

REACTIONS (1)
  - UVEITIS [None]
